FAERS Safety Report 9189262 (Version 1)
Quarter: 2013Q1

REPORT INFORMATION
  Report Type: Spontaneous
  Country: US (occurrence: None)
  Receive Date: 20130321
  Receipt Date: 20130321
  Transmission Date: 20140127
  Serious: Yes (Life-Threatening)
  Sender: FDA-Public Use
  Company Number: None

PATIENT
  Age: 35 Year
  Sex: Male
  Weight: 78.93 kg

DRUGS (3)
  1. XYREM 0.5G/ML JAZZ [Suspect]
     Indication: NARCOLEPSY
     Dosage: 9GM  BEDTIME  PO
     Route: 048
     Dates: start: 20130201, end: 20130315
  2. NUVIGIL [Concomitant]
  3. VYVANSE [Concomitant]

REACTIONS (2)
  - Mania [None]
  - Hallucination, auditory [None]
